FAERS Safety Report 5317590-7 (Version None)
Quarter: 2007Q2

REPORT INFORMATION
  Report Type: 
  Country: None (occurrence: None)
  Receive Date: 20070507
  Receipt Date: 20070425
  Transmission Date: 20071010
  Serious: Yes (Other)
  Sender: FDA-Public Use
  Company Number: PHFR2007GB00649

PATIENT
  Age: 57 Year
  Sex: Male
  Weight: 62 kg

DRUGS (3)
  1. DESFERAL [Suspect]
     Indication: IRON OVERLOAD
     Dosage: 10 G, QW
     Route: 058
     Dates: start: 20040830
  2. BLOOD AND RELATED PRODUCTS [Concomitant]
     Indication: MYELODYSPLASTIC SYNDROME
     Route: 065
     Dates: start: 20020701
  3. ASCORBIC ACID [Concomitant]
     Indication: IRON OVERLOAD
     Dosage: 250 MG / DAILY
     Route: 048
     Dates: start: 20040830

REACTIONS (9)
  - BLOOD ALKALINE PHOSPHATASE INCREASED [None]
  - BONE DENSITY DECREASED [None]
  - HIGH TURNOVER OSTEOPATHY [None]
  - HYPOPHOSPHATAEMIA [None]
  - OSTEOPENIA [None]
  - OSTEOPOROSIS [None]
  - RENAL TUBULAR DISORDER [None]
  - SERUM FERRITIN INCREASED [None]
  - URINE CALCIUM INCREASED [None]
